FAERS Safety Report 12200402 (Version 3)
Quarter: 2016Q2

REPORT INFORMATION
  Report Type: Spontaneous
  Country: US (occurrence: US)
  Receive Date: 20160322
  Receipt Date: 20160415
  Transmission Date: 20160815
  Serious: Yes (Death)
  Sender: FDA-Public Use
  Company Number: US-BAYER-2016-050819

PATIENT
  Age: 47 Year
  Sex: Female

DRUGS (1)
  1. MIRALAX [Suspect]
     Active Substance: POLYETHYLENE GLYCOL 3350
     Indication: CONSTIPATION
     Dosage: 1 DF, QD
     Route: 048
     Dates: start: 2000, end: 2007

REACTIONS (3)
  - Breast cancer stage IV [Fatal]
  - Metastases to central nervous system [Fatal]
  - Product use issue [None]

NARRATIVE: CASE EVENT DATE: 2000
